FAERS Safety Report 5060425-0 (Version None)
Quarter: 2006Q3

REPORT INFORMATION
  Report Type: 
  Country: None (occurrence: None)
  Receive Date: 20060720
  Receipt Date: 20060713
  Transmission Date: 20061208
  Serious: Yes (Life-Threatening, Hospitalization, Other)
  Sender: FDA-Public Use
  Company Number: 2006RL000141

PATIENT
  Age: 85 Year
  Sex: Female
  Weight: 89.3586 kg

DRUGS (21)
  1. RYTHMOL [Suspect]
     Indication: ATRIAL FIBRILLATION
     Dosage: 425 MG; BID; PO;  225 MG; BID; PO;  325 MG; BID; PO
     Route: 048
     Dates: start: 20060404, end: 20060418
  2. RYTHMOL [Suspect]
     Indication: ATRIAL FIBRILLATION
     Dosage: 425 MG; BID; PO;  225 MG; BID; PO;  325 MG; BID; PO
     Route: 048
     Dates: start: 20060419, end: 20060501
  3. RYTHMOL [Suspect]
     Indication: ATRIAL FIBRILLATION
     Dosage: 425 MG; BID; PO;  225 MG; BID; PO;  325 MG; BID; PO
     Route: 048
     Dates: start: 20060502
  4. WARFARIN SODIUM [Suspect]
     Indication: DRUG USE FOR UNKNOWN INDICATION
     Dosage: 5 MG; QD; PO
     Route: 048
     Dates: start: 20051001
  5. COUMADIN [Suspect]
     Indication: DRUG USE FOR UNKNOWN INDICATION
     Dosage: 1 MG;  MG; TIW
     Dates: start: 20060301
  6. BACTRIM [Suspect]
     Indication: DRUG USE FOR UNKNOWN INDICATION
  7. ALDACTONE [Suspect]
     Indication: CARDIAC FAILURE CONGESTIVE
     Dosage: 50 MG; BID; PO;  100 MG; QD; PO
     Route: 048
     Dates: start: 19660103
  8. QUININE SULFATE [Concomitant]
  9. THYROID TAB [Concomitant]
  10. ASPIRIN [Concomitant]
  11. PREMARIN [Concomitant]
  12. LASIX [Concomitant]
  13. PREDNISONE [Concomitant]
  14. GLIPIZIDE [Concomitant]
  15. ANCEF [Concomitant]
  16. CLINDAMYCIN [Concomitant]
  17. PREDNISONE [Concomitant]
  18. LASIX [Concomitant]
  19. GLIPIZIDE [Concomitant]
  20. L-THYROXINE [Concomitant]
  21. SILVADENE [Concomitant]

REACTIONS (14)
  - ATRIAL FIBRILLATION [None]
  - BLOOD CREATININE INCREASED [None]
  - BLOOD GLUCOSE DECREASED [None]
  - BLOOD SODIUM DECREASED [None]
  - BLOOD UREA INCREASED [None]
  - CARDIAC FAILURE CONGESTIVE [None]
  - CELLULITIS [None]
  - ECCHYMOSIS [None]
  - ERYTHEMA [None]
  - HYPERKALAEMIA [None]
  - INTERNATIONAL NORMALISED RATIO INCREASED [None]
  - PROTHROMBIN TIME PROLONGED [None]
  - SKIN ULCER [None]
  - WOUND INFECTION BACTERIAL [None]
